FAERS Safety Report 18519097 (Version 11)
Quarter: 2023Q4

REPORT INFORMATION
  Report Type: Report from Study
  Country: CN (occurrence: CN)
  Receive Date: 20201118
  Receipt Date: 20231110
  Transmission Date: 20240110
  Serious: Yes (Hospitalization, Other)
  Sender: FDA-Public Use
  Company Number: CN-PFIZER INC-2020444118

PATIENT
  Age: 63 Year
  Sex: Female
  Weight: 60 kg

DRUGS (24)
  1. EPIRUBICIN HYDROCHLORIDE [Suspect]
     Active Substance: EPIRUBICIN HYDROCHLORIDE
     Indication: Triple negative breast cancer
     Dosage: 146.7 MG (90 MG/M2 ), CYCLIC (1 IN 2 WK)
     Route: 042
     Dates: start: 20200106, end: 20200404
  2. EPIRUBICIN HYDROCHLORIDE [Suspect]
     Active Substance: EPIRUBICIN HYDROCHLORIDE
     Dosage: 146.7 MG, CYCLIC (1 IN 2 WK)
     Dates: start: 20200404
  3. PACLITAXEL [Suspect]
     Active Substance: PACLITAXEL
     Indication: Triple negative breast cancer
     Dosage: 130.4 MG (80 MG/M2), WEEKLY (1 IN 1 WK) INFUSION
     Route: 042
     Dates: start: 20191012, end: 20191228
  4. PACLITAXEL [Suspect]
     Active Substance: PACLITAXEL
     Dosage: 130.4 MG, WEEKLY (1 IN 1 WK)  INFUSION
     Dates: start: 20191228
  5. ATEZOLIZUMAB [Suspect]
     Active Substance: ATEZOLIZUMAB
     Indication: Triple negative breast cancer
     Dosage: 840 MG,CYCLIC (1 IN 2 WK), INFUSION, SOLUTION
     Route: 041
     Dates: start: 20191012, end: 20200404
  6. CYCLOPHOSPHAMIDE [Suspect]
     Active Substance: CYCLOPHOSPHAMIDE
     Indication: Triple negative breast cancer
     Dosage: 978 MG (600 MG/M2), CYCLIC (1 IN 2 WK) INJECTION SOLUTION
     Route: 042
     Dates: start: 20200106, end: 20200404
  7. CYCLOPHOSPHAMIDE [Suspect]
     Active Substance: CYCLOPHOSPHAMIDE
     Dosage: 978 MG, CYCLIC (1 IN 2 WK) INJECTION SOLUTION
     Dates: start: 20200106, end: 20200404
  8. FILGRASTIM [Suspect]
     Active Substance: FILGRASTIM
     Indication: Triple negative breast cancer
     Dosage: 300 UG, CYCLIC (1 IN 2 WK)
     Route: 058
     Dates: start: 20200113, end: 20200113
  9. FILGRASTIM [Suspect]
     Active Substance: FILGRASTIM
     Dosage: 300 UG, CYCLIC (1 IN 2 WK)
     Route: 058
     Dates: start: 20200119, end: 20200120
  10. FILGRASTIM [Suspect]
     Active Substance: FILGRASTIM
     Dosage: 300 UG, CYCLIC (1 IN 2 WK)
     Route: 058
     Dates: start: 20200403, end: 20200406
  11. DICLOFENAC SODIUM [Concomitant]
     Active Substance: DICLOFENAC\DICLOFENAC SODIUM
     Dosage: 50 MG, 3 DAYS
     Dates: start: 20200412, end: 20200414
  12. CEPHRADINE [Concomitant]
     Active Substance: CEPHRADINE
     Dosage: 6 G
     Dates: start: 20200411
  13. PANTOPRAZOLE SODIUM [Concomitant]
     Active Substance: PANTOPRAZOLE SODIUM
     Dosage: 40 MG
     Dates: start: 20200411, end: 20200423
  14. CILASTATIN SODIUM\IMIPENEM [Concomitant]
     Active Substance: CILASTATIN SODIUM\IMIPENEM
     Dosage: UNK
     Dates: start: 20200412, end: 20200423
  15. GRANULOCYTE COLONY-STIMULATING FACTOR NOS [Concomitant]
     Active Substance: GRANULOCYTE COLONY-STIMULATING FACTOR NOS
     Dosage: UNK
     Dates: start: 20200411, end: 20200411
  16. GRANULOCYTE COLONY-STIMULATING FACTOR NOS [Concomitant]
     Active Substance: GRANULOCYTE COLONY-STIMULATING FACTOR NOS
     Dosage: UNK
     Dates: start: 20200412, end: 20200418
  17. THROMBOPOIETIN [Concomitant]
     Active Substance: THROMBOPOIETIN
     Dosage: UNK
     Dates: start: 20200415, end: 20200422
  18. SODIUM CHLORIDE [Concomitant]
     Active Substance: SODIUM CHLORIDE
     Dosage: UNK
     Dates: start: 20200411, end: 20200414
  19. MONTMORILLONITE [Concomitant]
     Active Substance: MONTMORILLONITE
     Dosage: POWDER
     Dates: start: 20200412, end: 20200412
  20. DEXAMETHASONE [Concomitant]
     Active Substance: DEXAMETHASONE
     Dosage: UNK
     Dates: start: 20200412, end: 20200412
  21. ERYTHROPOIETIN [Concomitant]
     Active Substance: ERYTHROPOIETIN
     Dosage: UNK
     Dates: start: 20200417, end: 20200423
  22. PROMETHAZINE HYDROCHLORIDE [Concomitant]
     Active Substance: PROMETHAZINE HYDROCHLORIDE
     Dosage: UNK
     Dates: start: 20200415, end: 20200415
  23. FUSIDIC ACID [Concomitant]
     Active Substance: FUSIDIC ACID
     Dosage: UNK
     Dates: start: 20200417, end: 20200417
  24. ALPRAZOLAM [Concomitant]
     Active Substance: ALPRAZOLAM
     Dosage: UNK
     Dates: start: 20200419

REACTIONS (2)
  - Anal abscess [Recovered/Resolved with Sequelae]
  - Febrile neutropenia [Recovered/Resolved]

NARRATIVE: CASE EVENT DATE: 20200410
